FAERS Safety Report 7128461-8 (Version None)
Quarter: 2010Q4

REPORT INFORMATION
  Report Type: 
  Country: None (occurrence: None)
  Receive Date: 20101130
  Receipt Date: 20101119
  Transmission Date: 20110411
  Serious: Yes (Hospitalization)
  Sender: FDA-Public Use
  Company Number: US-ACTELION-A-NJ2010-41925

PATIENT

DRUGS (1)
  1. BOSENTAN TABLET UNKNOWN US MG [Suspect]
     Indication: PULMONARY ARTERIAL HYPERTENSION
     Dosage: UNK
     Route: 048
     Dates: start: 20100506, end: 20101113

REACTIONS (12)
  - ANAEMIA [None]
  - ASTHENIA [None]
  - BRONCHITIS [None]
  - CHOKING SENSATION [None]
  - DECREASED APPETITE [None]
  - DYSPHONIA [None]
  - DYSPNOEA [None]
  - MYALGIA [None]
  - NAUSEA [None]
  - PLEURAL EFFUSION [None]
  - PYREXIA [None]
  - SCIATICA [None]
